FAERS Safety Report 10344216 (Version 1)
Quarter: 2014Q3

REPORT INFORMATION
  Report Type: Spontaneous
  Country: US (occurrence: US)
  Receive Date: 20140728
  Receipt Date: 20140728
  Transmission Date: 20150326
  Serious: Yes (Other)
  Sender: FDA-Public Use
  Company Number: US-AMGEN INC.-USASP2014056189

PATIENT
  Age: 37 Year
  Sex: Female
  Weight: 56.69 kg

DRUGS (5)
  1. ENBREL [Suspect]
     Active Substance: ETANERCEPT
     Indication: RHEUMATOID ARTHRITIS
     Dosage: 25 MG, 2 TIMES/WK
     Route: 058
  2. ORTHO-TRI-CYCLEN LO [Concomitant]
     Dosage: UNK
  3. ZYRTEC [Concomitant]
     Active Substance: CETIRIZINE HYDROCHLORIDE
     Dosage: UNK
  4. PROVENTIL                          /00139501/ [Concomitant]
     Dosage: UNK
  5. PLAQUENIL [Concomitant]
     Active Substance: HYDROXYCHLOROQUINE SULFATE
     Dosage: UNK

REACTIONS (10)
  - Injection site pruritus [Unknown]
  - Injection site swelling [Unknown]
  - Injection site mass [Unknown]
  - Injection site pain [Unknown]
  - Injection site warmth [Unknown]
  - Injection site reaction [Unknown]
  - Rheumatoid arthritis [Not Recovered/Not Resolved]
  - Injection site erythema [Unknown]
  - Injection site rash [Unknown]
  - Injection site bruising [Unknown]
